FAERS Safety Report 13198140 (Version 2)
Quarter: 2017Q2

REPORT INFORMATION
  Report Type: Spontaneous
  Country: JP (occurrence: JP)
  Receive Date: 20170208
  Receipt Date: 20170508
  Transmission Date: 20170830
  Serious: Yes (Death, Life-Threatening, Hospitalization, Other)
  Sender: FDA-Public Use
  Company Number: JP-BAYER-2017-019618

PATIENT
  Age: 69 Year
  Sex: Female
  Weight: 51 kg

DRUGS (7)
  1. ALESION [Concomitant]
     Active Substance: EPINASTINE HYDROCHLORIDE
     Dosage: DAILY DOSE 20 MG
     Route: 048
     Dates: end: 20170104
  2. MAGMITT [Concomitant]
     Active Substance: MAGNESIUM OXIDE
     Dosage: DAILY DOSE 1980 MG
     Route: 048
     Dates: end: 20170104
  3. GASTER [Concomitant]
     Active Substance: FAMOTIDINE
     Dosage: DAILY DOSE 20 MG
     Route: 048
     Dates: end: 20170104
  4. STIVARGA [Suspect]
     Active Substance: REGORAFENIB
     Indication: COLON CANCER
     Dosage: 160 MG, QD
     Route: 048
     Dates: start: 20161219, end: 20170104
  5. METHYCOBAL [Concomitant]
     Active Substance: METHYLCOBALAMIN
     Dosage: DAILY DOSE 1500 MG
     Route: 048
     Dates: end: 20170104
  6. LASIX [Concomitant]
     Active Substance: FUROSEMIDE
     Indication: ASCITES
     Dosage: DAILY DOSE 40 MG
     Route: 048
     Dates: end: 20170104
  7. ALDACTONE A [Concomitant]
     Active Substance: SPIRONOLACTONE
     Indication: ASCITES
     Dosage: DAILY DOSE 25 MG
     Route: 048
     Dates: end: 20170104

REACTIONS (8)
  - Hepatic function abnormal [None]
  - Stomatitis [Recovered/Resolved]
  - Dehydration [Recovered/Resolved]
  - Disseminated intravascular coagulation [Recovered/Resolved]
  - Colon cancer [Fatal]
  - Rash [None]
  - Cheilitis [Recovered/Resolved]
  - Shock [Recovered/Resolved]

NARRATIVE: CASE EVENT DATE: 20161226
